FAERS Safety Report 17232821 (Version 44)
Quarter: 2025Q1

REPORT INFORMATION
  Report Type: Spontaneous
  Country: CA (occurrence: CA)
  Receive Date: 20200103
  Receipt Date: 20250324
  Transmission Date: 20250409
  Serious: Yes (Death, Life-Threatening, Hospitalization, Other)
  Sender: BAUSCH AND LOMB
  Company Number: CA-BAUSCH-BL-2019-066666

PATIENT
  Age: 65 Year
  Sex: Male
  Weight: 79 kg

DRUGS (98)
  1. TIAZAC [Suspect]
     Active Substance: DILTIAZEM HYDROCHLORIDE
     Indication: Product used for unknown indication
     Route: 065
  2. TIAZAC [Suspect]
     Active Substance: DILTIAZEM HYDROCHLORIDE
     Route: 065
  3. TIAZAC [Suspect]
     Active Substance: DILTIAZEM HYDROCHLORIDE
     Route: 065
  4. TIAZAC [Suspect]
     Active Substance: DILTIAZEM HYDROCHLORIDE
     Route: 065
  5. TIAZAC [Suspect]
     Active Substance: DILTIAZEM HYDROCHLORIDE
     Route: 065
  6. TIAZAC [Suspect]
     Active Substance: DILTIAZEM HYDROCHLORIDE
     Route: 065
  7. TIAZAC [Suspect]
     Active Substance: DILTIAZEM HYDROCHLORIDE
     Route: 065
  8. DILTIAZEM HYDROCHLORIDE [Suspect]
     Active Substance: DILTIAZEM HYDROCHLORIDE
     Indication: Product used for unknown indication
     Route: 065
  9. DILTIAZEM HYDROCHLORIDE [Suspect]
     Active Substance: DILTIAZEM HYDROCHLORIDE
     Dosage: EXTENDED RELEASE TABLET
     Route: 065
  10. DILTIAZEM HYDROCHLORIDE [Suspect]
     Active Substance: DILTIAZEM HYDROCHLORIDE
     Route: 065
  11. DILTIAZEM [Suspect]
     Active Substance: DILTIAZEM
     Indication: Product used for unknown indication
     Route: 065
  12. DILTIAZEM [Suspect]
     Active Substance: DILTIAZEM
     Route: 065
  13. DILTIAZEM [Suspect]
     Active Substance: DILTIAZEM
     Route: 065
  14. DILTIAZEM [Suspect]
     Active Substance: DILTIAZEM
     Route: 065
  15. DILTIAZEM [Suspect]
     Active Substance: DILTIAZEM
     Route: 065
  16. DILTIAZEM [Suspect]
     Active Substance: DILTIAZEM
     Route: 065
  17. DILTIAZEM [Suspect]
     Active Substance: DILTIAZEM
     Route: 065
  18. DILTIAZEM [Suspect]
     Active Substance: DILTIAZEM
     Route: 065
  19. DILTIAZEM [Suspect]
     Active Substance: DILTIAZEM
     Route: 065
  20. DILTIAZEM [Suspect]
     Active Substance: DILTIAZEM
     Route: 065
  21. DILTIAZEM [Suspect]
     Active Substance: DILTIAZEM
     Route: 065
  22. DILTIAZEM [Suspect]
     Active Substance: DILTIAZEM
     Route: 065
  23. DILTIAZEM [Suspect]
     Active Substance: DILTIAZEM
     Indication: Product used for unknown indication
     Route: 065
  24. METFORMIN [Suspect]
     Active Substance: METFORMIN HYDROCHLORIDE
     Indication: Product used for unknown indication
     Route: 065
  25. METFORMIN [Suspect]
     Active Substance: METFORMIN HYDROCHLORIDE
     Route: 065
  26. METFORMIN [Suspect]
     Active Substance: METFORMIN HYDROCHLORIDE
     Dosage: METFORMIN HCL
     Route: 065
  27. METFORMIN [Suspect]
     Active Substance: METFORMIN HYDROCHLORIDE
     Dosage: METFORMIN HCL, 2 EVERY 1 DAYS, 3 ADMINISTRATIONS
     Route: 065
  28. METFORMIN [Suspect]
     Active Substance: METFORMIN HYDROCHLORIDE
     Route: 065
  29. METFORMIN [Suspect]
     Active Substance: METFORMIN HYDROCHLORIDE
     Dosage: METFORMIN HCL, 2 ADMINISTRATIONS
     Route: 065
  30. METFORMIN [Suspect]
     Active Substance: METFORMIN HYDROCHLORIDE
     Dosage: METFORMIN HCL
     Route: 065
  31. METFORMIN [Suspect]
     Active Substance: METFORMIN HYDROCHLORIDE
     Dosage: METFORMIN HCL, 3 ADMINISTRATIONS
     Route: 065
  32. METFORMIN [Suspect]
     Active Substance: METFORMIN HYDROCHLORIDE
     Dosage: METFORMIN HCL
     Route: 065
  33. METFORMIN [Suspect]
     Active Substance: METFORMIN HYDROCHLORIDE
     Route: 065
  34. METFORMIN [Suspect]
     Active Substance: METFORMIN HYDROCHLORIDE
     Dosage: ADMINISTERED- 2TIMES
     Route: 065
  35. METFORMIN [Suspect]
     Active Substance: METFORMIN HYDROCHLORIDE
     Dosage: ADMINISTERED- 2TIMES
     Route: 065
  36. METFORMIN [Suspect]
     Active Substance: METFORMIN HYDROCHLORIDE
     Route: 065
  37. METFORMIN [Suspect]
     Active Substance: METFORMIN HYDROCHLORIDE
     Route: 065
  38. METFORMIN [Suspect]
     Active Substance: METFORMIN HYDROCHLORIDE
     Route: 065
  39. METFORMIN [Suspect]
     Active Substance: METFORMIN HYDROCHLORIDE
     Route: 065
  40. METFORMIN [Suspect]
     Active Substance: METFORMIN HYDROCHLORIDE
     Route: 065
  41. METFORMIN [Suspect]
     Active Substance: METFORMIN HYDROCHLORIDE
     Route: 065
  42. METFORMIN [Suspect]
     Active Substance: METFORMIN HYDROCHLORIDE
     Route: 065
  43. METFORMIN [Suspect]
     Active Substance: METFORMIN HYDROCHLORIDE
     Dosage: 2 ADMINISTRATIONS
     Route: 065
  44. METFORMIN [Suspect]
     Active Substance: METFORMIN HYDROCHLORIDE
     Route: 065
  45. METFORMIN [Suspect]
     Active Substance: METFORMIN HYDROCHLORIDE
     Route: 065
  46. METFORMIN [Suspect]
     Active Substance: METFORMIN HYDROCHLORIDE
     Route: 065
  47. METFORMIN [Suspect]
     Active Substance: METFORMIN HYDROCHLORIDE
     Route: 065
  48. METFORMIN [Suspect]
     Active Substance: METFORMIN HYDROCHLORIDE
     Route: 065
  49. METFORMIN [Suspect]
     Active Substance: METFORMIN HYDROCHLORIDE
     Route: 065
  50. METFORMIN [Suspect]
     Active Substance: METFORMIN HYDROCHLORIDE
     Route: 065
  51. METFORMIN [Suspect]
     Active Substance: METFORMIN HYDROCHLORIDE
     Route: 065
  52. BUDESONIDE [Suspect]
     Active Substance: BUDESONIDE
     Indication: Product used for unknown indication
     Route: 065
  53. BUDESONIDE [Suspect]
     Active Substance: BUDESONIDE
     Route: 065
  54. BUDESONIDE [Suspect]
     Active Substance: BUDESONIDE
     Route: 048
  55. BUDESONIDE [Suspect]
     Active Substance: BUDESONIDE
     Route: 065
  56. ALBUTEROL [Suspect]
     Active Substance: ALBUTEROL
     Indication: Asthma
     Route: 065
  57. ALBUTEROL [Suspect]
     Active Substance: ALBUTEROL
     Indication: Eosinophilic granulomatosis with polyangiitis
     Dosage: NOT SPECIFIED, 2 ADMINISTRATIONS
     Route: 065
  58. ALBUTEROL [Suspect]
     Active Substance: ALBUTEROL
     Dosage: NOT SPECIFIED
     Route: 065
  59. ALBUTEROL [Suspect]
     Active Substance: ALBUTEROL
     Dosage: SALBUTAMOL HFA
     Route: 065
  60. ALBUTEROL [Suspect]
     Active Substance: ALBUTEROL
     Route: 065
  61. ALBUTEROL [Suspect]
     Active Substance: ALBUTEROL
     Dosage: SALBUTAMOL HFA
     Route: 065
  62. ALBUTEROL [Suspect]
     Active Substance: ALBUTEROL
     Dosage: SALBUTAMOL SULFATE
  63. ALBUTEROL [Suspect]
     Active Substance: ALBUTEROL
     Dosage: SALBUTAMOL SULFATE
     Route: 065
  64. ALBUTEROL [Suspect]
     Active Substance: ALBUTEROL
     Route: 065
  65. ALBUTEROL [Suspect]
     Active Substance: ALBUTEROL
     Dosage: SALBUTAMOL HFA: METERED-DOSE (AEROSOL)
     Route: 065
  66. ALBUTEROL [Suspect]
     Active Substance: ALBUTEROL
     Dosage: SALBUTAMOL HFA: METERED-DOSE (AEROSOL)
     Route: 065
  67. ALBUTEROL [Suspect]
     Active Substance: ALBUTEROL
     Route: 065
  68. ALBUTEROL [Suspect]
     Active Substance: ALBUTEROL
     Route: 065
  69. ALBUTEROL [Suspect]
     Active Substance: ALBUTEROL
     Route: 065
  70. ALBUTEROL [Suspect]
     Active Substance: ALBUTEROL
     Dosage: SALBUTAMOL SULFATE
     Route: 065
  71. ALBUTEROL [Suspect]
     Active Substance: ALBUTEROL
     Route: 065
  72. ALBUTEROL [Suspect]
     Active Substance: ALBUTEROL
     Dosage: DOSAGE FORM: NOT SPECIFIED
     Route: 065
  73. AZATHIOPRINE [Suspect]
     Active Substance: AZATHIOPRINE
     Indication: Product used for unknown indication
     Dosage: (ADMINISTERED 3- TIMES)
     Route: 065
  74. AZATHIOPRINE [Suspect]
     Active Substance: AZATHIOPRINE
     Route: 065
  75. AZATHIOPRINE [Suspect]
     Active Substance: AZATHIOPRINE
     Dosage: NOT SPECIFIED (ADMINISTERED 2 TIMES)
     Route: 048
  76. AZATHIOPRINE [Suspect]
     Active Substance: AZATHIOPRINE
     Route: 065
  77. AZATHIOPRINE [Suspect]
     Active Substance: AZATHIOPRINE
     Route: 065
  78. AZATHIOPRINE [Suspect]
     Active Substance: AZATHIOPRINE
     Route: 065
  79. AZATHIOPRINE [Suspect]
     Active Substance: AZATHIOPRINE
     Dosage: DOSAGE FORM- NOT SPECIFIED
     Route: 065
  80. AZATHIOPRINE [Suspect]
     Active Substance: AZATHIOPRINE
     Route: 065
  81. AZATHIOPRINE [Suspect]
     Active Substance: AZATHIOPRINE
     Route: 065
  82. AZATHIOPRINE [Suspect]
     Active Substance: AZATHIOPRINE
     Route: 048
  83. AZATHIOPRINE [Suspect]
     Active Substance: AZATHIOPRINE
     Route: 065
  84. AZATHIOPRINE [Suspect]
     Active Substance: AZATHIOPRINE
     Route: 065
  85. AZATHIOPRINE [Suspect]
     Active Substance: AZATHIOPRINE
     Route: 065
  86. AZATHIOPRINE [Suspect]
     Active Substance: AZATHIOPRINE
     Route: 065
  87. AZATHIOPRINE [Suspect]
     Active Substance: AZATHIOPRINE
     Dosage: NOT SPECIFIED
     Route: 065
  88. AZATHIOPRINE [Suspect]
     Active Substance: AZATHIOPRINE
     Route: 065
  89. AZATHIOPRINE [Suspect]
     Active Substance: AZATHIOPRINE
     Dosage: NOT SPECIFIED
     Route: 065
  90. AZATHIOPRINE [Suspect]
     Active Substance: AZATHIOPRINE
     Route: 065
  91. AZATHIOPRINE [Suspect]
     Active Substance: AZATHIOPRINE
     Route: 065
  92. AZATHIOPRINE [Suspect]
     Active Substance: AZATHIOPRINE
     Route: 065
  93. AZATHIOPRINE [Suspect]
     Active Substance: AZATHIOPRINE
     Route: 065
  94. AZATHIOPRINE [Suspect]
     Active Substance: AZATHIOPRINE
     Route: 065
  95. AZATHIOPRINE [Suspect]
     Active Substance: AZATHIOPRINE
     Route: 065
  96. AZATHIOPRINE [Suspect]
     Active Substance: AZATHIOPRINE
     Dosage: DOSAGE FORM: NOT SPECIFIED
     Route: 065
  97. BECLOMETHASONE [Suspect]
     Active Substance: BECLOMETHASONE
     Indication: Product used for unknown indication
     Route: 065
  98. BUDESONIDE [Suspect]
     Active Substance: BUDESONIDE
     Indication: Product used for unknown indication
     Route: 065

REACTIONS (43)
  - Death [Fatal]
  - Neuritis [Fatal]
  - Neurological symptom [Fatal]
  - Obstructive airways disorder [Fatal]
  - Pulmonary alveolar haemorrhage [Fatal]
  - Pulmonary fibrosis [Fatal]
  - Arteriosclerosis coronary artery [Fatal]
  - Lung disorder [Fatal]
  - Respiratory symptom [Fatal]
  - Anxiety [Fatal]
  - Eosinophilic granulomatosis with polyangiitis [Fatal]
  - Full blood count abnormal [Fatal]
  - Condition aggravated [Fatal]
  - Hypoxia [Fatal]
  - Productive cough [Fatal]
  - Pulmonary embolism [Fatal]
  - Skin exfoliation [Fatal]
  - Hospitalisation [Fatal]
  - Spirometry abnormal [Fatal]
  - Nodule [Fatal]
  - Normochromic normocytic anaemia [Fatal]
  - Sleep disorder due to a general medical condition [Fatal]
  - Thrombosis [Fatal]
  - Arteriosclerosis [Fatal]
  - Total lung capacity abnormal [Fatal]
  - Loss of personal independence in daily activities [Fatal]
  - Haemoptysis [Fatal]
  - Hypothyroidism [Fatal]
  - Pulmonary vasculitis [Fatal]
  - Mycotic allergy [Fatal]
  - Mite allergy [Fatal]
  - Dust allergy [Fatal]
  - Pain in extremity [Fatal]
  - Wheezing [Fatal]
  - Asthma [Fatal]
  - Conjunctivitis allergic [Fatal]
  - Vasculitis [Fatal]
  - Dyspnoea [Fatal]
  - Antineutrophil cytoplasmic antibody positive [Fatal]
  - Forced expiratory volume decreased [Fatal]
  - Capillaritis [Fatal]
  - Sleep disorder [Fatal]
  - Therapeutic product effect incomplete [Fatal]
